FAERS Safety Report 11521077 (Version 1)
Quarter: 2015Q3

REPORT INFORMATION
  Report Type: Spontaneous
  Country: US (occurrence: US)
  Receive Date: 20150918
  Receipt Date: 20150918
  Transmission Date: 20151125
  Serious: Yes (Other)
  Sender: FDA-Public Use
  Company Number: US-NOVOPROD-464054

PATIENT
  Age: 73 Year
  Sex: Female
  Weight: 56.69 kg

DRUGS (1)
  1. NOVOLOG [Suspect]
     Active Substance: INSULIN ASPART
     Indication: TYPE 1 DIABETES MELLITUS
     Dosage: SLIDING SCALE, QID
     Route: 058
     Dates: start: 1985

REACTIONS (4)
  - Blood glucose increased [Recovered/Resolved]
  - Dehydration [Recovered/Resolved]
  - Product quality issue [Recovered/Resolved]
  - Hypotension [Recovered/Resolved]

NARRATIVE: CASE EVENT DATE: 20150904
